FAERS Safety Report 13526311 (Version 1)
Quarter: 2017Q2

REPORT INFORMATION
  Report Type: Spontaneous
  Country: US (occurrence: US)
  Receive Date: 20170508
  Receipt Date: 20170508
  Transmission Date: 20170830
  Serious: Yes (Hospitalization)
  Sender: FDA-Public Use
  Company Number: None

PATIENT
  Age: 52 Year
  Sex: Male
  Weight: 69.75 kg

DRUGS (12)
  1. PANCRELIPASE 1PA [Concomitant]
  2. PROBIOTIC [Concomitant]
     Active Substance: PROBIOTICS NOS
  3. CALCIUM CARBONATE-VITAMIN D [Concomitant]
     Active Substance: CALCIUM CARBONATE\VITAMIN D
  4. OXYCODONE [Concomitant]
     Active Substance: OXYCODONE
  5. PEMBROLIZUMAB. [Suspect]
     Active Substance: PEMBROLIZUMAB
     Indication: LUNG NEOPLASM MALIGNANT
     Dosage: ?          OTHER FREQUENCY:Q3WEEKS;?
     Route: 041
     Dates: start: 20160407, end: 20170223
  6. ESZOPICLONE. [Concomitant]
     Active Substance: ESZOPICLONE
  7. ALPRAZOLAM. [Concomitant]
     Active Substance: ALPRAZOLAM
  8. FLUTICASONE-SALMETEROL [Concomitant]
  9. MULTIPLE VITAMINS-MINERALS [Concomitant]
  10. CETIRIZINE HYDROCHLORIDE\PSEUDOEPHEDRINE HYDROCHLORIDE [Concomitant]
     Active Substance: CETIRIZINE HYDROCHLORIDE\PSEUDOEPHEDRINE HYDROCHLORIDE
  11. ALBUTEROL. [Concomitant]
     Active Substance: ALBUTEROL
  12. THIAMINE. [Concomitant]
     Active Substance: THIAMINE

REACTIONS (9)
  - Irritability [None]
  - Restlessness [None]
  - Tachycardia [None]
  - Arthralgia [None]
  - Fatigue [None]
  - Lethargy [None]
  - Myalgia [None]
  - Adrenal insufficiency [None]
  - Adrenocortical insufficiency acute [None]

NARRATIVE: CASE EVENT DATE: 20170428
